FAERS Safety Report 23060693 (Version 1)
Quarter: 2023Q4

REPORT INFORMATION
  Report Type: Spontaneous
  Country: FR (occurrence: FR)
  Receive Date: 20231012
  Receipt Date: 20231012
  Transmission Date: 20240109
  Serious: Yes (Death, Other)
  Sender: FDA-Public Use
  Company Number: None

PATIENT
  Age: 67 Year
  Sex: Female

DRUGS (4)
  1. KEYTRUDA [Suspect]
     Active Substance: PEMBROLIZUMAB
     Indication: Endometrial cancer
     Dosage: 200 MG ON 04/19/2023, 05/12/2023 AND 06/02/2023
     Route: 042
     Dates: start: 20230419, end: 20230602
  2. KEYTRUDA [Suspect]
     Active Substance: PEMBROLIZUMAB
     Dosage: 200 MG ON 04/19/2023, 05/12/2023 AND 06/02/2023
     Route: 042
     Dates: start: 20230419, end: 20230602
  3. KEYTRUDA [Suspect]
     Active Substance: PEMBROLIZUMAB
     Dosage: 200 MG ON 04/19/2023, 05/12/2023 AND 06/02/2023
     Route: 042
     Dates: start: 20230419, end: 20230602
  4. LENVATINIB MESYLATE [Suspect]
     Active Substance: LENVATINIB MESYLATE
     Indication: Endometrial cancer
     Dosage: 20 MILLIGRAM, QD
     Route: 042
     Dates: start: 20230419, end: 20230512

REACTIONS (1)
  - Febrile neutropenia [Fatal]

NARRATIVE: CASE EVENT DATE: 20230531
